FAERS Safety Report 7371380-2 (Version None)
Quarter: 2011Q1

REPORT INFORMATION
  Report Type: 
  Country: None (occurrence: None)
  Receive Date: 20110322
  Receipt Date: 20110322
  Transmission Date: 20110831
  Serious: Yes (Other)
  Sender: FDA-Public Use
  Company Number: None

PATIENT
  Age: 61 Year
  Sex: Female
  Weight: 99.7913 kg

DRUGS (2)
  1. LEVAQUIN [Suspect]
     Indication: INCREASED UPPER AIRWAY SECRETION
     Dates: start: 20101207, end: 20101217
  2. LEVAQUIN [Suspect]
     Indication: INCREASED UPPER AIRWAY SECRETION
     Dates: start: 20101220, end: 20101228

REACTIONS (3)
  - ARTHRALGIA [None]
  - MUSCULAR WEAKNESS [None]
  - PAIN [None]
